FAERS Safety Report 20043297 (Version 1)
Quarter: 2021Q4

REPORT INFORMATION
  Report Type: Spontaneous
  Country: US (occurrence: US)
  Receive Date: 20211108
  Receipt Date: 20211108
  Transmission Date: 20220303
  Serious: No
  Sender: FDA-Public Use
  Company Number: US-GLAXOSMITHKLINE-USCH2021078945

PATIENT
  Sex: Male

DRUGS (1)
  1. ABREVA [Suspect]
     Active Substance: DOCOSANOL
     Indication: Oral pain
     Dosage: UNK

REACTIONS (1)
  - Product use in unapproved indication [Unknown]
